FAERS Safety Report 10707169 (Version 3)
Quarter: 2022Q3

REPORT INFORMATION
  Report Type: Spontaneous
  Country: NZ (occurrence: NZ)
  Receive Date: 20150113
  Receipt Date: 20220821
  Transmission Date: 20221026
  Serious: Yes (Death, Life-Threatening, Hospitalization, Other)
  Sender: FDA-Public Use
  Company Number: NZ-JNJFOC-20150101581

PATIENT
  Sex: Female

DRUGS (8)
  1. NICOTINE [Suspect]
     Active Substance: NICOTINE
     Indication: Smoking cessation therapy
     Route: 065
  2. NICOTINE [Suspect]
     Active Substance: NICOTINE
     Route: 065
  3. NICOTINE [Suspect]
     Active Substance: NICOTINE
     Indication: Smoking cessation therapy
     Route: 065
  4. NICOTINE [Suspect]
     Active Substance: NICOTINE
     Route: 065
  5. NICOTINE [Suspect]
     Active Substance: NICOTINE
     Indication: Smoking cessation therapy
     Route: 065
  6. NICOTINE [Suspect]
     Active Substance: NICOTINE
     Route: 065
  7. NICOTINE [Suspect]
     Active Substance: NICOTINE
     Route: 065
  8. CYTISINE [Suspect]
     Active Substance: CYTISINE
     Indication: Smoking cessation therapy
     Route: 065

REACTIONS (9)
  - Asphyxia [Fatal]
  - Myocardial infarction [Fatal]
  - Brain neoplasm [Unknown]
  - Withdrawal syndrome [Unknown]
  - Nausea [Unknown]
  - Vomiting [Unknown]
  - Sleep disorder [Unknown]
  - Exposure during pregnancy [Unknown]
  - Drug ineffective [Unknown]
